FAERS Safety Report 9039518 (Version 1)
Quarter: 2013Q1

REPORT INFORMATION
  Report Type: Spontaneous
  Country: US (occurrence: None)
  Receive Date: 20130123
  Receipt Date: 20130123
  Transmission Date: 20140127
  Serious: Yes (Other)
  Sender: FDA-Public Use
  Company Number: None

PATIENT
  Age: 46 Year
  Sex: Female

DRUGS (2)
  1. REBIF 8.8MCG PFIZOR [Suspect]
     Indication: MULTIPLE SCLEROSIS
     Dosage: 8.8 MCG  3 TIMES PER WEEK  SUB Q
     Route: 058
     Dates: start: 201212
  2. REBIF 22 MCG PFIZOR [Suspect]
     Dosage: 22MCG  3 TIMES PER WEEK  SUB Q
     Route: 058
     Dates: start: 201212, end: 20130114

REACTIONS (6)
  - Diarrhoea [None]
  - Oral herpes [None]
  - Muscle spasms [None]
  - Irritability [None]
  - Crying [None]
  - Depression [None]
